FAERS Safety Report 6821349-9 (Version None)
Quarter: 2010Q3

REPORT INFORMATION
  Report Type: 
  Country: None (occurrence: None)
  Receive Date: 20100707
  Receipt Date: 20080625
  Transmission Date: 20110219
  Serious: No
  Sender: FDA-Public Use
  Company Number: US-PFIZER INC-2008053522

PATIENT
  Sex: Male
  Weight: 86.363 kg

DRUGS (5)
  1. ZOLOFT [Suspect]
     Indication: ANXIETY
     Route: 048
     Dates: start: 20080529, end: 20080601
  2. DARVOCET [Concomitant]
  3. XANAX [Concomitant]
  4. ACETYLSALICYLIC ACID [Concomitant]
  5. REMERON [Concomitant]

REACTIONS (3)
  - MUSCULOSKELETAL PAIN [None]
  - PAIN [None]
  - PAIN IN EXTREMITY [None]
